FAERS Safety Report 8779923 (Version 1)
Quarter: 2012Q4

REPORT INFORMATION
  Report Type: 
  Country: US (occurrence: US)
  Receive Date: 20120912
  Receipt Date: 20120912
  Transmission Date: 20130627
  Serious: No
  Sender: FDA-Public Use
  Company Number: US-VERTEX PHARMACEUTICAL INC.-AE-2012-005065

PATIENT
  Age: 62 Year
  Sex: Male
  Weight: 90.91 kg

DRUGS (7)
  1. INCIVEK [Suspect]
     Indication: HEPATITIS C
     Route: 048
     Dates: start: 20120406
  2. RIBAVIRIN [Concomitant]
     Indication: HEPATITIS C
     Route: 048
     Dates: start: 20120406
  3. PEGINTRON [Concomitant]
     Indication: HEPATITIS C
     Route: 058
     Dates: start: 20120406
  4. LOVASA [Concomitant]
     Indication: BLOOD CHOLESTEROL INCREASED
     Route: 048
  5. VITAMIN D [Concomitant]
     Indication: MEDICAL DIET
     Route: 048
  6. NADOLOL [Concomitant]
     Indication: HYPERTENSION
     Route: 048
  7. PROCRIT [Concomitant]

REACTIONS (4)
  - Influenza like illness [Recovered/Resolved]
  - Muscle spasms [Unknown]
  - Fatigue [Unknown]
  - Anaemia [Unknown]
